FAERS Safety Report 7563772-3 (Version None)
Quarter: 2011Q2

REPORT INFORMATION
  Report Type: 
  Country: None (occurrence: None)
  Receive Date: 20110621
  Receipt Date: 20110621
  Transmission Date: 20111010
  Serious: Yes (Hospitalization)
  Sender: FDA-Public Use
  Company Number: None

PATIENT
  Age: 60 Year
  Sex: Female
  Weight: 61.2356 kg

DRUGS (1)
  1. BONIVA [Suspect]

REACTIONS (5)
  - MUSCULAR WEAKNESS [None]
  - VOMITING [None]
  - DYSARTHRIA [None]
  - PAIN [None]
  - DYSSTASIA [None]
